FAERS Safety Report 4690164-7 (Version None)
Quarter: 2005Q2

REPORT INFORMATION
  Report Type: 
  Country: None (occurrence: None)
  Receive Date: 20050613
  Receipt Date: 20050603
  Transmission Date: 20051028
  Serious: Yes (Death)
  Sender: FDA-Public Use
  Company Number: 2005JP001136

PATIENT
  Age: 51 Year
  Sex: Female

DRUGS (4)
  1. PROGRAF [Suspect]
     Indication: BONE MARROW TRANSPLANT
     Dates: start: 20040101
  2. CORTICOSTEROIDS [Concomitant]
  3. GANCICLOVIR [Concomitant]
  4. CYCLOSPORINE [Concomitant]

REACTIONS (7)
  - ADENOVIRUS INFECTION [None]
  - CYTOMEGALOVIRUS ANTIGEN POSITIVE [None]
  - DEPRESSED LEVEL OF CONSCIOUSNESS [None]
  - EPSTEIN-BARR VIRUS INFECTION [None]
  - GRAFT VERSUS HOST DISEASE [None]
  - HEPATITIS FULMINANT [None]
  - STEROID WITHDRAWAL SYNDROME [None]
